FAERS Safety Report 18941893 (Version 2)
Quarter: 2021Q1

REPORT INFORMATION
  Report Type: Spontaneous
  Country: ES (occurrence: ES)
  Receive Date: 20210225
  Receipt Date: 20210305
  Transmission Date: 20210420
  Serious: Yes (Other)
  Sender: FDA-Public Use
  Company Number: ES-TEVA-2021-ES-1882280

PATIENT
  Age: 43 Year
  Sex: Male

DRUGS (7)
  1. LEVOTHYROXINE. [Concomitant]
     Active Substance: LEVOTHYROXINE
     Indication: PRODUCT USED FOR UNKNOWN INDICATION
     Dosage: 50 MICROGRAM DAILY;
     Route: 065
  2. HYDROCORTISONE. [Concomitant]
     Active Substance: HYDROCORTISONE
     Indication: PRODUCT USED FOR UNKNOWN INDICATION
     Dosage: 30 MILLIGRAM DAILY; HYDROCORTISONE 30 MG A DAY, 2/3 IN THE MORNING AND 1/3 IN THE AFTERNOON
     Route: 065
  3. CABERGOLINE. [Suspect]
     Active Substance: CABERGOLINE
     Indication: PROLACTIN-PRODUCING PITUITARY TUMOUR
     Dosage: THERAPY STARTED AT 0.5MG/WEEK. THEREAFTER, THE DOSE WAS GRADUALLY INCREASED EVERY 2WEEKS TO 3MG/WEEK
     Route: 065
  4. CABERGOLINE. [Suspect]
     Active Substance: CABERGOLINE
     Dosage: CABERGOLINE DOSE WAS FURTHER INCREASED TO 4MG/WEEK
     Route: 065
  5. LEVETIRACETAM. [Concomitant]
     Active Substance: LEVETIRACETAM
     Indication: PETIT MAL EPILEPSY
     Dosage: 2000 MILLIGRAM DAILY;
     Route: 065
  6. CABERGOLINE. [Suspect]
     Active Substance: CABERGOLINE
     Dosage: LAST REPORTED DOSE
     Route: 065
  7. VALPROMIDE [Concomitant]
     Active Substance: VALPROMIDE
     Indication: PETIT MAL EPILEPSY
     Route: 065

REACTIONS (1)
  - Cerebrospinal fluid leakage [Not Recovered/Not Resolved]
